FAERS Safety Report 6439703-6 (Version None)
Quarter: 2009Q4

REPORT INFORMATION
  Report Type: 
  Country: None (occurrence: None)
  Receive Date: 20091113
  Receipt Date: 20091104
  Transmission Date: 20100525
  Serious: Yes (Hospitalization, Disabling)
  Sender: FDA-Public Use
  Company Number: GXKR2009CH12264

PATIENT
  Age: 84 Year
  Sex: Female

DRUGS (7)
  1. CLOPIN ECO (NGX) [Suspect]
     Indication: DELUSIONAL DISORDER, UNSPECIFIED TYPE
     Dosage: 100 MG, BID
     Route: 048
     Dates: start: 20091005, end: 20091006
  2. QUETIAPINE [Concomitant]
     Indication: DELUSIONAL DISORDER, UNSPECIFIED TYPE
     Dosage: 100 MG, BID (DID NOT RECEIVE ON 05 AND 06 OCT 2009)
     Route: 048
  3. ASPIRIN [Concomitant]
     Dosage: 100 MG, QD
     Route: 048
  4. NEXIUM [Concomitant]
     Dosage: 20 MG, QD
     Route: 048
  5. NEURONTIN [Concomitant]
     Dosage: 50 MG, QD
     Route: 048
  6. CONCOR [Concomitant]
     Dosage: 5 MG, QD
     Route: 048
     Dates: start: 20091005
  7. TORSEMIDE [Concomitant]
     Dosage: 10 MG, QD
     Route: 048

REACTIONS (4)
  - CONFUSIONAL STATE [None]
  - DEPRESSED LEVEL OF CONSCIOUSNESS [None]
  - DYSARTHRIA [None]
  - WRONG DRUG ADMINISTERED [None]
